FAERS Safety Report 8490327-9 (Version None)
Quarter: 2012Q3

REPORT INFORMATION
  Report Type: 
  Country: None (occurrence: None)
  Receive Date: 20120705
  Receipt Date: 20120625
  Transmission Date: 20120928
  Serious: Yes (Other)
  Sender: FDA-Public Use
  Company Number: US-JNJFOC-20120511792

PATIENT
  Sex: Female

DRUGS (4)
  1. INVEGA SUSTENNA [Suspect]
     Route: 030
     Dates: start: 20120423, end: 20120504
  2. INVEGA SUSTENNA [Suspect]
     Indication: MAJOR DEPRESSION
     Route: 030
     Dates: start: 20120417
  3. INVEGA [Concomitant]
     Indication: MAJOR DEPRESSION
     Route: 048
     Dates: start: 20120404, end: 20120417
  4. PROZAC [Concomitant]
     Indication: MAJOR DEPRESSION
     Route: 065
     Dates: start: 20100101

REACTIONS (3)
  - BREAST DISCHARGE [None]
  - OFF LABEL USE [None]
  - BLOOD PROLACTIN INCREASED [None]
